FAERS Safety Report 8022846-3 (Version None)
Quarter: 2012Q1

REPORT INFORMATION
  Report Type: 
  Country: None (occurrence: None)
  Receive Date: 20120104
  Receipt Date: 20111228
  Transmission Date: 20120608
  Serious: Yes (Hospitalization)
  Sender: FDA-Public Use
  Company Number: FR-ASTRAZENECA-2011SE78756

PATIENT
  Sex: Male

DRUGS (7)
  1. QUETIAPINE FUMARATE [Suspect]
     Indication: SCHIZOAFFECTIVE DISORDER
     Route: 048
     Dates: start: 20111222
  2. URBANYL [Concomitant]
  3. ABILIFY [Concomitant]
  4. SOLIAN [Concomitant]
  5. EQUANIL [Concomitant]
  6. PROZAC [Concomitant]
  7. NOCTAMIDE [Concomitant]

REACTIONS (3)
  - INSOMNIA [None]
  - FATIGUE [None]
  - PANIC ATTACK [None]
